FAERS Safety Report 22292621 (Version 4)
Quarter: 2023Q2

REPORT INFORMATION
  Report Type: Spontaneous
  Country: JP (occurrence: JP)
  Receive Date: 20230508
  Receipt Date: 20230609
  Transmission Date: 20230722
  Serious: Yes (Death, Hospitalization, Disabling, Other)
  Sender: FDA-Public Use
  Company Number: JP-ONO-2022JP028618

PATIENT
  Sex: Male
  Weight: 96.8 kg

DRUGS (6)
  1. OPDIVO [Suspect]
     Active Substance: NIVOLUMAB
     Indication: Metastatic renal cell carcinoma
     Dosage: UNK, FREQUENCY:73
     Route: 041
     Dates: start: 20190125, end: 20220516
  2. OPDIVO [Suspect]
     Active Substance: NIVOLUMAB
     Dosage: UNK
     Route: 041
     Dates: start: 20190125, end: 20220418
  3. OPDIVO [Suspect]
     Active Substance: NIVOLUMAB
     Dosage: UNK
     Route: 041
     Dates: start: 20220418, end: 20220516
  4. NORVASC [Concomitant]
     Active Substance: AMLODIPINE BESYLATE
     Indication: Product used for unknown indication
     Route: 048
     Dates: end: 20220516
  5. CRESTOR [Concomitant]
     Active Substance: ROSUVASTATIN CALCIUM
     Indication: Product used for unknown indication
     Route: 048
     Dates: end: 20220516
  6. ASPIRIN\LANSOPRAZOLE [Concomitant]
     Active Substance: ASPIRIN\LANSOPRAZOLE
     Indication: Product used for unknown indication
     Route: 048
     Dates: end: 20220516

REACTIONS (18)
  - Lower gastrointestinal haemorrhage [Not Recovered/Not Resolved]
  - Large intestine perforation [Fatal]
  - Immune-mediated enterocolitis [Not Recovered/Not Resolved]
  - Septic shock [Unknown]
  - Hypoalbuminaemia [Unknown]
  - Gastrooesophageal reflux disease [Recovered/Resolved]
  - Thrombocytopenia [Recovered/Resolved]
  - Upper gastrointestinal perforation [Unknown]
  - Nephritis [Not Recovered/Not Resolved]
  - Condition aggravated [Not Recovered/Not Resolved]
  - Pleural effusion [Unknown]
  - Oedema [Unknown]
  - Weight increased [Unknown]
  - Colon cancer [Unknown]
  - Haemorrhage [Not Recovered/Not Resolved]
  - Anaemia [Unknown]
  - Cytomegalovirus enterocolitis [Fatal]
  - Gram stain positive [Unknown]

NARRATIVE: CASE EVENT DATE: 20220530
